FAERS Safety Report 24155284 (Version 1)
Quarter: 2024Q3

REPORT INFORMATION
  Report Type: Spontaneous
  Country: IT (occurrence: IT)
  Receive Date: 20240731
  Receipt Date: 20240731
  Transmission Date: 20241017
  Serious: Yes (Other)
  Sender: ALKEM
  Company Number: IT-ALKEM LABORATORIES LIMITED-IT-ALKEM-2024-16423

PATIENT
  Age: 34 Year
  Sex: Female

DRUGS (11)
  1. AZATHIOPRINE [Suspect]
     Active Substance: AZATHIOPRINE
     Indication: Myasthenia gravis
     Dosage: 50 MILLIGRAM, QD
     Route: 065
  2. AZATHIOPRINE [Suspect]
     Active Substance: AZATHIOPRINE
     Dosage: 150 MILLIGRAM, QD (3 MONTHS)
     Route: 065
  3. AZATHIOPRINE [Suspect]
     Active Substance: AZATHIOPRINE
     Dosage: 200 MILLIGRAM, QD (6 MONTHS)
     Route: 065
  4. AZATHIOPRINE [Suspect]
     Active Substance: AZATHIOPRINE
     Dosage: 200 MILLIGRAM, QD (18 MONTHS)
     Route: 065
  5. PREDNISONE [Suspect]
     Active Substance: PREDNISONE
     Indication: Myasthenia gravis
     Dosage: 45 MILLIGRAM, QD
     Route: 065
  6. PREDNISONE [Suspect]
     Active Substance: PREDNISONE
     Dosage: 30 MILLIGRAM, QD (3 MONTHS)
     Route: 065
  7. PREDNISONE [Suspect]
     Active Substance: PREDNISONE
     Dosage: 25 MILLIGRAM, QD (6 MONTHS)
     Route: 065
  8. PYRIDOSTIGMINE BROMIDE [Suspect]
     Active Substance: PYRIDOSTIGMINE BROMIDE
     Indication: Myasthenia gravis
     Dosage: 360 MILLIGRAM, QD
     Route: 065
  9. PYRIDOSTIGMINE BROMIDE [Suspect]
     Active Substance: PYRIDOSTIGMINE BROMIDE
     Dosage: 240 MILLIGRAM, QD (3 MONTHS)
     Route: 065
  10. PYRIDOSTIGMINE BROMIDE [Suspect]
     Active Substance: PYRIDOSTIGMINE BROMIDE
     Dosage: 240 MILLIGRAM, QD (6 MONTHS)
     Route: 065
  11. PYRIDOSTIGMINE BROMIDE [Suspect]
     Active Substance: PYRIDOSTIGMINE BROMIDE
     Dosage: 240 MILLIGRAM, QD (18 MONTHS)
     Route: 065

REACTIONS (22)
  - Intestinal obstruction [Unknown]
  - Chills [Unknown]
  - Blood pressure increased [Unknown]
  - Thirst [Unknown]
  - Decreased appetite [Unknown]
  - Vomiting [Unknown]
  - Bowel movement irregularity [Unknown]
  - Hair growth abnormal [Unknown]
  - Pain [Unknown]
  - Dyspepsia [Unknown]
  - Cough [Unknown]
  - Weight decreased [Unknown]
  - General physical health deterioration [Unknown]
  - Headache [Unknown]
  - Dizziness [Unknown]
  - Irritability [Unknown]
  - Depressed mood [Unknown]
  - Dyspnoea [Unknown]
  - Pyrexia [Unknown]
  - Malaise [Unknown]
  - Arthralgia [Unknown]
  - Genital herpes [Unknown]
